FAERS Safety Report 20662649 (Version 1)
Quarter: 2022Q2

REPORT INFORMATION
  Report Type: Report from Study
  Country: US (occurrence: US)
  Receive Date: 20220401
  Receipt Date: 20220401
  Transmission Date: 20220721
  Serious: Yes (Hospitalization)
  Sender: FDA-Public Use
  Company Number: US-BIOVITRUM-2022US02679

PATIENT
  Sex: Female

DRUGS (2)
  1. KINERET [Suspect]
     Active Substance: ANAKINRA
     Indication: Product used for unknown indication
     Route: 058
     Dates: start: 20210122
  2. KINERET [Suspect]
     Active Substance: ANAKINRA
     Route: 058
     Dates: start: 20210122

REACTIONS (6)
  - Conjunctivitis [Unknown]
  - Pyrexia [Unknown]
  - Vomiting [Unknown]
  - Dehydration [Unknown]
  - Lethargy [Unknown]
  - Product dose omission issue [Unknown]
